FAERS Safety Report 18881204 (Version 1)
Quarter: 2021Q1

REPORT INFORMATION
  Report Type: Spontaneous
  Country: US (occurrence: US)
  Receive Date: 20210212
  Receipt Date: 20210212
  Transmission Date: 20210420
  Serious: No
  Sender: FDA-Public Use
  Company Number: US-SPECGX-T202000504

PATIENT
  Sex: Female

DRUGS (5)
  1. ANAFRANIL [Suspect]
     Active Substance: CLOMIPRAMINE HYDROCHLORIDE
     Dosage: 75 MILLIGRAM, UNK
     Route: 065
     Dates: start: 20200220, end: 202002
  2. ANAFRANIL [Suspect]
     Active Substance: CLOMIPRAMINE HYDROCHLORIDE
     Dosage: 50 MILLIGRAM, BID (50MG IN THE AM AND 50MG AT DINNER TIME)
     Route: 065
     Dates: start: 20200223
  3. ANAFRANIL [Suspect]
     Active Substance: CLOMIPRAMINE HYDROCHLORIDE
     Dosage: 50 MILLIGRAM, UNK
     Route: 065
     Dates: start: 20200211, end: 202002
  4. ANAFRANIL [Suspect]
     Active Substance: CLOMIPRAMINE HYDROCHLORIDE
     Indication: OBSESSIVE-COMPULSIVE DISORDER
     Dosage: UNK
     Route: 065
     Dates: start: 2001
  5. ANAFRANIL [Suspect]
     Active Substance: CLOMIPRAMINE HYDROCHLORIDE
     Dosage: 25 MILLIGRAM, UNK
     Route: 065
     Dates: start: 20200206, end: 202002

REACTIONS (2)
  - Disease recurrence [Unknown]
  - Obsessive-compulsive disorder [Unknown]
